FAERS Safety Report 11321873 (Version 2)
Quarter: 2015Q3

REPORT INFORMATION
  Report Type: Report from Study
  Country: JP (occurrence: JP)
  Receive Date: 20150729
  Receipt Date: 20150908
  Transmission Date: 20151125
  Serious: Yes (Other)
  Sender: FDA-Public Use
  Company Number: JP-BAXTER-2015BAX040532

PATIENT

DRUGS (9)
  1. MORPHINE [Suspect]
     Active Substance: MORPHINE
     Route: 042
     Dates: start: 2013, end: 2013
  2. CHLORHEXIDINE [Suspect]
     Active Substance: CHLORHEXIDINE
     Indication: INFECTION PROPHYLAXIS
     Route: 065
     Dates: start: 2013, end: 2013
  3. MORPHINE [Suspect]
     Active Substance: MORPHINE
     Indication: GENERAL ANAESTHESIA
     Route: 065
     Dates: start: 2013, end: 2013
  4. LEVOBUPIVACAINE [Suspect]
     Active Substance: LEVOBUPIVACAINE
     Indication: NERVE BLOCK
     Route: 065
     Dates: start: 2013, end: 2013
  5. PROPOFOL. [Suspect]
     Active Substance: PROPOFOL
     Indication: GENERAL ANAESTHESIA
     Dosage: 1-2 MG PER KG
     Route: 065
     Dates: start: 2013, end: 2013
  6. SUPRANE [Suspect]
     Active Substance: DESFLURANE
     Indication: MAINTENANCE OF ANAESTHESIA
     Dosage: EXPIRATORY LEVEL 4.5 PERCENT
     Route: 055
     Dates: start: 2013, end: 2013
  7. ROCURONIUM [Suspect]
     Active Substance: ROCURONIUM BROMIDE
     Indication: GENERAL ANAESTHESIA
     Route: 065
     Dates: start: 2013, end: 2013
  8. SUGAMMADEX [Suspect]
     Active Substance: SUGAMMADEX
     Indication: PRODUCT USED FOR UNKNOWN INDICATION
     Route: 065
     Dates: start: 2013, end: 2013
  9. REMIFENTANIL [Suspect]
     Active Substance: REMIFENTANIL
     Indication: MAINTENANCE OF ANAESTHESIA
     Dosage: 0 TO 0.2 MG PER KG PER MINUTE
     Route: 065
     Dates: start: 2013, end: 2013

REACTIONS (2)
  - Dysphonia [Unknown]
  - Diaphragmatic paralysis [Unknown]

NARRATIVE: CASE EVENT DATE: 2013
